FAERS Safety Report 20572320 (Version 1)
Quarter: 2022Q1

REPORT INFORMATION
  Report Type: Spontaneous
  Country: US (occurrence: None)
  Receive Date: 20220308
  Receipt Date: 20220308
  Transmission Date: 20220423
  Serious: Yes (Other)
  Sender: FDA-Public Use
  Company Number: None

PATIENT
  Age: 26 Year
  Sex: Female
  Weight: 67.59 kg

DRUGS (1)
  1. ORTHO TRI CYCLEN LO [Suspect]
     Active Substance: ETHINYL ESTRADIOL\NORGESTIMATE
     Dosage: FREQUENCY : DAILY;?
     Route: 048
     Dates: start: 20220214, end: 20220307

REACTIONS (2)
  - Mood swings [None]
  - Headache [None]

NARRATIVE: CASE EVENT DATE: 20220214
